FAERS Safety Report 4901172-2 (Version None)
Quarter: 2006Q1

REPORT INFORMATION
  Report Type: 
  Country: None (occurrence: None)
  Receive Date: 20060201
  Receipt Date: 20060119
  Transmission Date: 20060701
  Serious: Yes (Life-Threatening, Hospitalization)
  Sender: FDA-Public Use
  Company Number: 2006003008

PATIENT
  Age: 46 Year
  Sex: Female
  Weight: 58 kg

DRUGS (4)
  1. ZITHROMAX [Suspect]
     Indication: PNEUMONIA MYCOPLASMAL
     Dosage: 500 MG (1 IN 1 D), ORAL
     Route: 048
     Dates: start: 20051011, end: 20051013
  2. PL (PYRIDOXAL) [Concomitant]
  3. MEDICON (DEXTROMETHORPHAN HYDROBROMIDE) [Concomitant]
  4. BROMCOSAL (AMBROXOL HYDROCHLORIDE) [Concomitant]

REACTIONS (3)
  - ALVEOLITIS ALLERGIC [None]
  - DRUG HYPERSENSITIVITY [None]
  - PNEUMOTHORAX [None]
